FAERS Safety Report 7870431-6 (Version None)
Quarter: 2011Q4

REPORT INFORMATION
  Report Type: 
  Country: None (occurrence: None)
  Receive Date: 20111029
  Receipt Date: 20110309
  Transmission Date: 20120403
  Serious: No
  Sender: FDA-Public Use
  Company Number: US-AMGEN-USASP2011013290

PATIENT
  Sex: Male

DRUGS (1)
  1. ENBREL [Suspect]
     Indication: PSORIATIC ARTHROPATHY
     Dosage: 50 MG, QWK
     Dates: start: 20050721

REACTIONS (4)
  - INFLUENZA [None]
  - MUSCULOSKELETAL DEFORMITY [None]
  - PSORIATIC ARTHROPATHY [None]
  - NASOPHARYNGITIS [None]
